FAERS Safety Report 17222643 (Version 1)
Quarter: 2020Q1

REPORT INFORMATION
  Report Type: Spontaneous
  Country: DE (occurrence: DE)
  Receive Date: 20200102
  Receipt Date: 20200102
  Transmission Date: 20200409
  Serious: Yes (Hospitalization)
  Sender: FDA-Public Use
  Company Number: DE-TEVA-2019-DE-1159201

PATIENT
  Age: 45 Year
  Sex: Female

DRUGS (3)
  1. METOPROLOL. [Concomitant]
     Active Substance: METOPROLOL
     Dosage: 23.75 MG
  2. L-THYROX HEXAL [Concomitant]
     Active Substance: LEVOTHYROXINE SODIUM
     Dosage: 100 ?G
  3. AMOXICILLIN. [Suspect]
     Active Substance: AMOXICILLIN
     Dosage: 500 MILLIHGRAM

REACTIONS (6)
  - Dyspnoea [Unknown]
  - Abdominal pain [Unknown]
  - Product prescribing error [Unknown]
  - Vomiting [Unknown]
  - Nausea [Unknown]
  - Diarrhoea [Unknown]

NARRATIVE: CASE EVENT DATE: 20190704
